FAERS Safety Report 11363516 (Version 2)
Quarter: 2015Q3

REPORT INFORMATION
  Report Type: Spontaneous
  Country: IT (occurrence: IT)
  Receive Date: 20150811
  Receipt Date: 20150827
  Transmission Date: 20151125
  Serious: Yes (Hospitalization)
  Sender: FDA-Public Use
  Company Number: IT-009507513-1508ITA003381

PATIENT
  Age: 79 Year
  Sex: Female

DRUGS (9)
  1. MIRAPEXIN [Suspect]
     Active Substance: PRAMIPEXOLE
     Indication: PARKINSON^S DISEASE
     Dosage: 1 DOSE UNIT DAILY
     Route: 048
     Dates: start: 20150701, end: 20150710
  2. HALCION [Concomitant]
     Active Substance: TRIAZOLAM
     Route: 048
  3. CIPROXIN (CIPROFLOXACIN) [Concomitant]
     Active Substance: CIPROFLOXACIN
     Indication: URINARY TRACT INFECTION
     Dosage: UNK
     Dates: end: 20150723
  4. NORVASC [Concomitant]
     Active Substance: AMLODIPINE BESYLATE
     Route: 048
  5. MANTADAN [Suspect]
     Active Substance: AMANTADINE HYDROCHLORIDE
     Indication: PARKINSON^S DISEASE
     Dosage: 1 DOSE UNIT DAILY
     Route: 048
     Dates: start: 20150701, end: 20150710
  6. CARDIOASPIRIN [Concomitant]
     Active Substance: ASPIRIN
     Route: 048
  7. SINEMET [Suspect]
     Active Substance: CARBIDOPA\LEVODOPA
     Indication: PARKINSON^S DISEASE
     Dosage: 1 TABLET DAILY
     Route: 048
     Dates: start: 20150701, end: 20150710
  8. AZILECT [Suspect]
     Active Substance: RASAGILINE MESYLATE
     Indication: PARKINSON^S DISEASE
     Dosage: 1 DOSE UNIT DAILY
     Route: 048
     Dates: start: 20150701, end: 20150710
  9. COMTAN [Suspect]
     Active Substance: ENTACAPONE
     Indication: PARKINSON^S DISEASE
     Dosage: 1 DOSE UNIT DAILY
     Route: 048
     Dates: start: 20150701, end: 20150710

REACTIONS (4)
  - Hyperthermia malignant [Unknown]
  - Hyperpyrexia [Unknown]
  - Vertigo [Unknown]
  - Confusional state [Unknown]

NARRATIVE: CASE EVENT DATE: 20150710
